FAERS Safety Report 5052982-5 (Version None)
Quarter: 2006Q3

REPORT INFORMATION
  Report Type: 
  Country: None (occurrence: None)
  Receive Date: 20060711
  Receipt Date: 20060619
  Transmission Date: 20061208
  Serious: Yes (Hospitalization)
  Sender: FDA-Public Use
  Company Number: FR200606004255

PATIENT
  Age: 33 Year
  Sex: Female

DRUGS (4)
  1. PROZAC [Suspect]
     Indication: DEPRESSION
     Dosage: 20 MG DAILY (1/D) ORAL
     Route: 048
     Dates: start: 20000101, end: 20060501
  2. PAROXETINE HYDROCHLORIDE [Concomitant]
  3. ATARAX [Concomitant]
  4. RAMIPRIL [Concomitant]

REACTIONS (12)
  - AGGRESSION [None]
  - COMA [None]
  - CONFUSIONAL STATE [None]
  - DISORIENTATION [None]
  - DRUG WITHDRAWAL SYNDROME [None]
  - ENCEPHALITIS [None]
  - GASTROINTESTINAL DISORDER [None]
  - HALLUCINATION [None]
  - HYPERTHERMIA [None]
  - MENINGITIS [None]
  - MYOCLONUS [None]
  - TREMOR [None]
